FAERS Safety Report 9256094 (Version 1)
Quarter: 2013Q2

REPORT INFORMATION
  Report Type: Spontaneous
  Country: US (occurrence: US)
  Receive Date: 20130425
  Receipt Date: 20130425
  Transmission Date: 20140414
  Serious: No
  Sender: FDA-Public Use
  Company Number: US-AMGEN-USASP2012021251

PATIENT
  Age: 49 Year
  Sex: Female
  Weight: 87.8 kg

DRUGS (4)
  1. PEGFILGRASTIM [Suspect]
     Indication: BREAST CANCER
     Dosage: 6 MG, UNK
     Route: 058
     Dates: start: 20090722
  2. BEVACIZUMAB [Concomitant]
     Indication: BREAST CANCER
     Dosage: 15 MG/KG, Q3WK
     Route: 042
     Dates: start: 20090721
  3. CYCLOPHOSPHAMIDE [Concomitant]
     Indication: BREAST CANCER
     Dosage: 60 MG/M2, UNK
     Route: 042
     Dates: start: 20090721
  4. DOXORUBICIN [Concomitant]
     Indication: BREAST CANCER
     Dosage: 60 MG/M2, UNK
     Route: 042
     Dates: start: 20090721

REACTIONS (1)
  - Ejection fraction decreased [Recovered/Resolved]
